FAERS Safety Report 21403277 (Version 1)
Quarter: 2022Q4

REPORT INFORMATION
  Report Type: Spontaneous
  Country: US (occurrence: US)
  Receive Date: 20221003
  Receipt Date: 20221003
  Transmission Date: 20230113
  Serious: Yes (Other)
  Sender: FDA-Public Use
  Company Number: US-BAYER-2022A134173

PATIENT
  Sex: Female

DRUGS (3)
  1. ALEVE [Suspect]
     Active Substance: NAPROXEN SODIUM
  2. LENVIMA [Concomitant]
     Active Substance: LENVATINIB
     Dosage: 12 MG
     Dates: start: 20220902
  3. KEYTRUDA [Concomitant]
     Active Substance: PEMBROLIZUMAB

REACTIONS (6)
  - Haemorrhage [Unknown]
  - Bleeding time prolonged [Unknown]
  - Pain in extremity [Recovered/Resolved]
  - Dyspnoea [Unknown]
  - Electric shock sensation [Recovered/Resolved]
  - Skin laceration [Unknown]
